FAERS Safety Report 9848543 (Version 1)
Quarter: 2013Q4

REPORT INFORMATION
  Report Type: Spontaneous
  Country: US (occurrence: None)
  Receive Date: 20131224
  Receipt Date: 20131224
  Transmission Date: 20140711
  Serious: Yes (Other)
  Sender: FDA-Public Use
  Company Number: PHEH2013US008693

PATIENT
  Age: 45 Year
  Sex: Female
  Weight: 61 kg

DRUGS (4)
  1. EXJADE (*CGP 72670*) DISPERSIBLE TABLET [Suspect]
     Indication: SICKLE CELL ANAEMIA
     Route: 048
     Dates: end: 20120411
  2. FOLIC ACID (FOLIC ACID) [Concomitant]
  3. HYDREA (HYDROXYCARBAMIDE) [Concomitant]
  4. RIRECTER (CHLORPHENESIN CARBAMATE) [Concomitant]

REACTIONS (5)
  - Hepatotoxicity [None]
  - Jaundice [None]
  - Liver function test abnormal [None]
  - Vomiting [None]
  - Nausea [None]
